FAERS Safety Report 9909139 (Version 1)
Quarter: 2014Q1

REPORT INFORMATION
  Report Type: Spontaneous
  Country: US (occurrence: None)
  Receive Date: 20140214
  Receipt Date: 20140214
  Transmission Date: 20141002
  Serious: No
  Sender: FDA-Public Use
  Company Number: None

PATIENT
  Age: 19 Year
  Sex: Male

DRUGS (4)
  1. LORAZEPAM [Suspect]
     Route: 048
  2. LITHIUM [Concomitant]
  3. RISPERIDONE [Concomitant]
  4. CHLORDIAZEPOXIDE [Concomitant]

REACTIONS (2)
  - Gait disturbance [None]
  - Dysarthria [None]
